FAERS Safety Report 8925143 (Version 2)
Quarter: 2015Q1

REPORT INFORMATION
  Report Type: Report from Study
  Country: US (occurrence: US)
  Receive Date: 20121126
  Receipt Date: 20150105
  Transmission Date: 20150721
  Serious: Yes (Hospitalization)
  Sender: FDA-Public Use
  Company Number: US-ASTRAZENECA-2012SE87299

PATIENT
  Age: 21358 Day
  Sex: Male
  Weight: 83.2 kg

DRUGS (9)
  1. NEXIUM [Concomitant]
     Active Substance: ESOMEPRAZOLE MAGNESIUM
  2. ATIVAN [Concomitant]
     Active Substance: LORAZEPAM
  3. BACTRIM [Concomitant]
     Active Substance: SULFAMETHOXAZOLE\TRIMETHOPRIM
  4. ZD6474 [Suspect]
     Active Substance: VANDETANIB
     Indication: GLIOBLASTOMA
     Route: 048
     Dates: start: 20090528, end: 20090706
  5. ZD6474 [Suspect]
     Active Substance: VANDETANIB
     Indication: GLIOBLASTOMA
     Route: 048
     Dates: start: 20090717, end: 201002
  6. SIROLIMUS. [Suspect]
     Active Substance: SIROLIMUS
     Indication: GLIOBLASTOMA
     Route: 048
     Dates: start: 20090528, end: 20090706
  7. DECADRON [Concomitant]
     Active Substance: DEXAMETHASONE
  8. HERBAL SUPPLEMENT [Concomitant]
     Active Substance: HERBALS
  9. LOVENOX [Concomitant]
     Active Substance: ENOXAPARIN SODIUM

REACTIONS (1)
  - Pulmonary embolism [Recovered/Resolved]

NARRATIVE: CASE EVENT DATE: 20090707
